FAERS Safety Report 6748910-4 (Version None)
Quarter: 2010Q2

REPORT INFORMATION
  Report Type: 
  Country: None (occurrence: None)
  Receive Date: 20100601
  Receipt Date: 20100519
  Transmission Date: 20101027
  Serious: Yes (Hospitalization, Other)
  Sender: FDA-Public Use
  Company Number: US-BAYER-200942472NA

PATIENT
  Age: 44 Year
  Sex: Female
  Weight: 68 kg

DRUGS (15)
  1. YAZ [Suspect]
     Indication: HORMONE REPLACEMENT THERAPY
     Route: 048
     Dates: start: 20080710, end: 20090301
  2. YASMIN [Suspect]
     Indication: HORMONE REPLACEMENT THERAPY
     Route: 048
     Dates: start: 20040607, end: 20080506
  3. SYNTHROID [Concomitant]
     Route: 065
     Dates: start: 20060101
  4. IBUPROFEN [Concomitant]
     Route: 065
     Dates: start: 20071228
  5. CELEBREX [Concomitant]
     Route: 065
     Dates: start: 20080211
  6. NAPROSYN [Concomitant]
     Route: 065
     Dates: start: 20040820
  7. GUAIFEN [Concomitant]
     Indication: PRODUCTIVE COUGH
     Route: 065
     Dates: start: 20000424, end: 20080501
  8. HYDROCODONE [Concomitant]
     Indication: PAIN
     Route: 065
     Dates: start: 20011105
  9. NEXIUM [Concomitant]
     Indication: GASTROOESOPHAGEAL REFLUX DISEASE
     Route: 065
     Dates: start: 20030130, end: 20070812
  10. OXYCODONE [Concomitant]
     Indication: PAIN
     Route: 065
     Dates: start: 20031120, end: 20090314
  11. CYMBALTA [Concomitant]
     Indication: STRESS
     Route: 065
     Dates: start: 20020501, end: 20080601
  12. BUDIPRION [Concomitant]
     Indication: STRESS
     Route: 065
     Dates: start: 20050527, end: 20060823
  13. CELEXA [Concomitant]
     Indication: STRESS
     Route: 065
     Dates: start: 20080101
  14. ONE-A-DAY [Concomitant]
     Indication: STRESS
     Route: 065
     Dates: start: 20000101
  15. CALCIUM CARBONATE [Concomitant]
     Route: 065
     Dates: start: 20000101

REACTIONS (3)
  - CHEST PAIN [None]
  - DYSPNOEA [None]
  - PULMONARY EMBOLISM [None]
